FAERS Safety Report 5680750-X (Version None)
Quarter: 2008Q1

REPORT INFORMATION
  Report Type: 
  Country: None (occurrence: None)
  Receive Date: 20080326
  Receipt Date: 20080303
  Transmission Date: 20080703
  Serious: No
  Sender: FDA-Public Use
  Company Number: US-BOEHRINGER INGELHEIM GMBH, GERMANY-2007-BP-26587BP

PATIENT
  Age: 42 Year
  Sex: Male

DRUGS (4)
  1. MIRAPEX [Suspect]
     Indication: RESTLESS LEGS SYNDROME
     Route: 048
     Dates: start: 20070701, end: 20071115
  2. VITAMINS [Concomitant]
  3. PROTONIX [Concomitant]
  4. LIPITOR [Concomitant]

REACTIONS (1)
  - ERECTILE DYSFUNCTION [None]
